FAERS Safety Report 15854023 (Version 3)
Quarter: 2019Q1

REPORT INFORMATION
  Report Type: Spontaneous
  Country: US (occurrence: US)
  Receive Date: 20190122
  Receipt Date: 20190304
  Transmission Date: 20190417
  Serious: No
  Sender: FDA-Public Use
  Company Number: US-PFIZER INC-2019023647

PATIENT
  Age: 66 Year
  Sex: Female
  Weight: 104.31 kg

DRUGS (3)
  1. SKELAXIN [Suspect]
     Active Substance: METAXALONE
     Indication: MUSCLE SPASMS
  2. LYRICA [Suspect]
     Active Substance: PREGABALIN
     Indication: NEURALGIA
     Dosage: 100 MG, 2X/DAY
     Route: 048
  3. SKELAXIN [Suspect]
     Active Substance: METAXALONE
     Indication: NEURALGIA
     Dosage: 2400 MG, DAILY
     Route: 048
     Dates: start: 2005

REACTIONS (4)
  - Thinking abnormal [Unknown]
  - Spinal pain [Unknown]
  - Pain [Unknown]
  - Dyslexia [Unknown]
